FAERS Safety Report 8108624-5 (Version None)
Quarter: 2012Q1

REPORT INFORMATION
  Report Type: 
  Country: None (occurrence: None)
  Receive Date: 20120202
  Receipt Date: 20120113
  Transmission Date: 20120608
  Serious: No
  Sender: FDA-Public Use
  Company Number: US-AMGEN-USASP2012002713

PATIENT
  Sex: Female

DRUGS (1)
  1. ENBREL [Suspect]
     Indication: RHEUMATOID ARTHRITIS
     Dosage: 50 MG, QWK
     Dates: start: 20110312, end: 20110101

REACTIONS (4)
  - OEDEMA PERIPHERAL [None]
  - GAIT DISTURBANCE [None]
  - PAIN IN EXTREMITY [None]
  - DRUG INEFFECTIVE [None]
